FAERS Safety Report 9144223 (Version 1)
Quarter: 2013Q1

REPORT INFORMATION
  Report Type: Report from Study
  Country: FR (occurrence: FR)
  Receive Date: 20130306
  Receipt Date: 20130306
  Transmission Date: 20140127
  Serious: Yes (Other)
  Sender: FDA-Public Use
  Company Number: FR-CELGENEUS-056-C5013-13023906

PATIENT
  Age: 76 Year
  Sex: Male
  Weight: 70 kg

DRUGS (11)
  1. CC-5013 [Suspect]
     Indication: PLASMA CELL MYELOMA
     Dosage: 25 MILLIGRAM
     Route: 048
     Dates: start: 20081210
  2. CC-5013 [Suspect]
     Dosage: 25 MILLIGRAM
     Route: 048
     Dates: start: 20130131
  3. DEXAMETHASONE [Suspect]
     Indication: PLASMA CELL MYELOMA
     Dosage: 40 MILLIGRAM
     Route: 065
     Dates: start: 20081210
  4. DEXAMETHASONE [Suspect]
     Route: 065
     Dates: end: 20100106
  5. RENITEC [Concomitant]
     Indication: HYPERTENSION
     Dosage: 20 MILLIGRAM
     Route: 048
     Dates: start: 1986
  6. PARACETAMOL [Concomitant]
     Indication: BONE PAIN
     Route: 048
     Dates: start: 2008
  7. ORACILLINE [Concomitant]
     Indication: INFECTION PROPHYLAXIS
     Dosage: MUI
     Route: 048
     Dates: start: 20080106
  8. PREVISCAN [Concomitant]
     Indication: THROMBOSIS PROPHYLAXIS
     Dosage: 10 MILLIGRAM
     Route: 048
     Dates: start: 20090306
  9. OMEPRAZOLE [Concomitant]
     Indication: METAPLASIA
     Dosage: 40 MILLIGRAM
     Route: 048
     Dates: start: 20100731
  10. IXPRIM [Concomitant]
     Indication: BONE PAIN
     Dosage: 2 TABLET
     Route: 048
     Dates: start: 20110201
  11. ENALAPRIL [Concomitant]
     Indication: HYPERTENSION
     Route: 048
     Dates: start: 20120202

REACTIONS (1)
  - Bladder transitional cell carcinoma [Recovered/Resolved]
